FAERS Safety Report 7894358-9 (Version None)
Quarter: 2011Q4

REPORT INFORMATION
  Report Type: 
  Country: None (occurrence: None)
  Receive Date: 20111104
  Receipt Date: 20111024
  Transmission Date: 20120403
  Serious: Yes (Other)
  Sender: FDA-Public Use
  Company Number: JP-ROCHE-765894

PATIENT
  Sex: Male
  Weight: 60 kg

DRUGS (3)
  1. CILOSTAZOL [Concomitant]
     Route: 048
     Dates: end: 20110307
  2. XELODA [Suspect]
     Indication: RECTAL CANCER
     Dosage: DOSAGE IS UNCERTAIN.
     Route: 048
     Dates: start: 20110216, end: 20110302
  3. WARFARIN SODIUM [Concomitant]
     Dosage: DOSAGE IS UNCERTAIN.
     Route: 048

REACTIONS (8)
  - HAEMOPTYSIS [None]
  - RASH [None]
  - COAGULATION TIME PROLONGED [None]
  - ACUTE RESPIRATORY FAILURE [None]
  - HYPERURICAEMIA [None]
  - PULMONARY ALVEOLAR HAEMORRHAGE [None]
  - DIARRHOEA [None]
  - DRUG INTERACTION [None]
